FAERS Safety Report 15421113 (Version 1)
Quarter: 2018Q3

REPORT INFORMATION
  Report Type: Report from Study
  Country: US (occurrence: US)
  Receive Date: 20180924
  Receipt Date: 20180924
  Transmission Date: 20181010
  Serious: Yes (Hospitalization)
  Sender: FDA-Public Use
  Company Number: US-ACTELION-A-NJ2018-176014

PATIENT
  Age: 67 Year
  Sex: Male
  Weight: 65.76 kg

DRUGS (44)
  1. ADCIRCA [Concomitant]
     Active Substance: TADALAFIL
     Indication: PULMONARY HYPERTENSION
     Dosage: 20 MG, QD
     Route: 048
     Dates: start: 20180530
  2. PRILOSEC [Concomitant]
     Active Substance: OMEPRAZOLE MAGNESIUM
     Dosage: 40 MG, QD
     Route: 048
     Dates: start: 20180710
  3. ATROPINE. [Concomitant]
     Active Substance: ATROPINE
     Dosage: 0.5 MG, PRN
     Dates: start: 20180821
  4. B?COMPLEX + VITAMIN C [Concomitant]
     Dosage: UNK, QD
     Route: 048
     Dates: start: 20180828
  5. ASPIRIN. [Concomitant]
     Active Substance: ASPIRIN
     Dosage: 81 MG, QD
     Route: 048
  6. PLAVIX [Concomitant]
     Active Substance: CLOPIDOGREL BISULFATE
     Dosage: 75 MG, QD
     Route: 048
     Dates: start: 20180621
  7. NORCO [Concomitant]
     Active Substance: ACETAMINOPHEN\HYDROCODONE BITARTRATE
     Dosage: 5?325 MG, Q6HRS, PRN
     Route: 048
     Dates: start: 20180711
  8. EPINEPHRINE. [Concomitant]
     Active Substance: EPINEPHRINE
     Dosage: UNK
     Route: 042
     Dates: start: 20180821
  9. VERSED [Concomitant]
     Active Substance: MIDAZOLAM HYDROCHLORIDE
     Dosage: UNK, PRN
     Route: 042
     Dates: start: 20180821
  10. PROTONIX [Concomitant]
     Active Substance: PANTOPRAZOLE SODIUM
     Dosage: 40 MG, QD
     Dates: start: 20180822
  11. VELETRI [Suspect]
     Active Substance: EPOPROSTENOL
     Indication: PULMONARY ARTERIAL HYPERTENSION
     Dosage: 10 NG/KG, PER MIN
     Route: 042
     Dates: start: 20100604
  12. NEXIUM [Concomitant]
     Active Substance: ESOMEPRAZOLE MAGNESIUM
     Dosage: 40 MG, QPM
     Route: 048
     Dates: start: 20180709
  13. KLOR?CON [Concomitant]
     Active Substance: POTASSIUM CHLORIDE
     Dosage: UNK, QD
     Route: 048
     Dates: start: 20180702
  14. DUONEB [Concomitant]
     Active Substance: ALBUTEROL SULFATE\IPRATROPIUM BROMIDE
     Dosage: UNK
     Dates: start: 20180822
  15. ZAROXOLYN [Concomitant]
     Active Substance: METOLAZONE
     Dosage: 2.5 MG, PRN FOR WEIGHT GAIN }152)
     Route: 048
     Dates: start: 20180702
  16. KLOR?CON [Concomitant]
     Active Substance: POTASSIUM CHLORIDE
     Dosage: 20 MEQ, QD
     Route: 048
  17. DEMADEX [Concomitant]
     Active Substance: TORSEMIDE
     Indication: OEDEMA PERIPHERAL
     Dosage: 20 MG, BID
     Route: 048
     Dates: start: 20180615
  18. DEMADEX [Concomitant]
     Active Substance: TORSEMIDE
     Dosage: 20 MG, QD
     Route: 048
  19. LIPITOR [Concomitant]
     Active Substance: ATORVASTATIN CALCIUM
     Dosage: 40 MG, QD
     Route: 048
     Dates: start: 20180803
  20. OXYGEN. [Concomitant]
     Active Substance: OXYGEN
     Indication: PULMONARY HYPERTENSION
     Dosage: 8 L/MIN, CONTINUOUS
     Route: 039
     Dates: start: 20180315
  21. FLONASE [Concomitant]
     Active Substance: FLUTICASONE PROPIONATE
     Indication: UPPER-AIRWAY COUGH SYNDROME
     Dosage: 50 MCG, UNK
     Route: 045
     Dates: start: 20080324
  22. LIDODERM [Concomitant]
     Active Substance: LIDOCAINE
     Dosage: UNK
     Route: 062
     Dates: start: 20180823
  23. ROXICODONE [Concomitant]
     Active Substance: OXYCODONE HYDROCHLORIDE
     Dosage: UNK, TID
     Route: 048
     Dates: start: 20180827
  24. CLOBETASOL [Concomitant]
     Active Substance: CLOBETASOL
     Indication: ECZEMA
     Dosage: 0.05% CREAM, APPLY TOPICALLY BID, PRN
     Route: 061
  25. NEURONTIN [Concomitant]
     Active Substance: GABAPENTIN
     Dosage: 600 MG, BID
     Route: 048
     Dates: start: 20160814
  26. MAGNESIUM SULFATE. [Concomitant]
     Active Substance: MAGNESIUM SULFATE
     Dosage: UNK
     Route: 042
     Dates: start: 20180829
  27. LETAIRIS [Concomitant]
     Active Substance: AMBRISENTAN
     Dosage: 10 MG, QD
     Route: 048
     Dates: start: 20180822
  28. DEMADEX [Concomitant]
     Active Substance: TORSEMIDE
     Dosage: 40 MG, QD
  29. INSPRA [Concomitant]
     Active Substance: EPLERENONE
     Dosage: 50 MG, QD
     Route: 048
     Dates: start: 20180828
  30. ZAROXOLYN [Concomitant]
     Active Substance: METOLAZONE
     Indication: OEDEMA PERIPHERAL
     Dosage: 2.5 MG, UNK
     Route: 048
     Dates: start: 20180702
  31. LAMISIL [Concomitant]
     Active Substance: TERBINAFINE HYDROCHLORIDE
     Dosage: 1% CREAM (30G), APPLY TOPICALLY BID
     Route: 061
     Dates: start: 20180709
  32. KLONOPIN [Concomitant]
     Active Substance: CLONAZEPAM
     Indication: ANXIETY
     Dosage: 0.5 MG, BID, PRN
     Route: 048
     Dates: start: 20180822
  33. HEPARIN [Concomitant]
     Active Substance: HEPARIN SODIUM
     Dosage: 3 ML/HR, UNK
     Route: 013
     Dates: start: 20180821
  34. PURALUBE [Concomitant]
     Active Substance: MINERAL OIL\PETROLATUM
     Dosage: UNK
     Dates: start: 20180821
  35. CLONAZEPAM. [Concomitant]
     Active Substance: CLONAZEPAM
     Dosage: 0.5 MG, PRN
     Route: 048
     Dates: start: 20180803
  36. FLONASE [Concomitant]
     Active Substance: FLUTICASONE PROPIONATE
     Dosage: 2 SPRAY EACH NOSTRIL DAILY
  37. ATARAX [Concomitant]
     Active Substance: HYDROXYZINE HYDROCHLORIDE
     Dosage: 25 MG, TID, PRN
     Route: 048
     Dates: start: 20180809
  38. BACTROBAN [Concomitant]
     Active Substance: MUPIROCIN\MUPIROCIN CALCIUM
     Dosage: 2% OINTMENT (30G), APPLY TOPICALLY, TID
     Route: 061
     Dates: start: 20180709
  39. DEXTRAN 70 W/HYPROMELLOSE [Concomitant]
     Dosage: UNK, PRN
     Route: 047
     Dates: start: 20180821
  40. TESSALON [Concomitant]
     Active Substance: BENZONATATE
     Indication: COUGH
     Dosage: 100 MG, QD, PRN
     Route: 048
     Dates: start: 20180822
  41. DILAUDID [Concomitant]
     Active Substance: HYDROMORPHONE HYDROCHLORIDE
     Dosage: UNK
     Route: 042
     Dates: start: 20180824
  42. CHLORASEPTIC SORE THROAT [Concomitant]
     Active Substance: PHENOL
     Dosage: UNK
     Dates: start: 20180828
  43. OCEAN MIST [Concomitant]
     Dosage: UNK
     Dates: start: 20180823
  44. MUCINEX [Concomitant]
     Active Substance: GUAIFENESIN
     Dosage: 600 MG, BID
     Route: 048

REACTIONS (50)
  - Pain [Unknown]
  - Pain in jaw [Unknown]
  - Sleep apnoea syndrome [Unknown]
  - Coronary artery disease [Unknown]
  - Sleep disorder [Unknown]
  - Headache [Unknown]
  - Constipation [Unknown]
  - Treatment noncompliance [Not Recovered/Not Resolved]
  - Chronic kidney disease [Recovering/Resolving]
  - Asthenia [Recovering/Resolving]
  - Pain in extremity [Unknown]
  - Hypoxia [Unknown]
  - Head injury [Unknown]
  - Micturition frequency decreased [Unknown]
  - Blood creatinine increased [Recovering/Resolving]
  - Right atrial pressure increased [Unknown]
  - Chest pain [Unknown]
  - Pruritus [Unknown]
  - Oedema [Recovering/Resolving]
  - Fall [Unknown]
  - Fatigue [Not Recovered/Not Resolved]
  - Dyspnoea exertional [Not Recovered/Not Resolved]
  - Wound infection staphylococcal [Unknown]
  - Cardiac failure [Unknown]
  - Tremor [Unknown]
  - Right ventricular systolic pressure increased [Unknown]
  - Pulmonary hypertension [Unknown]
  - Balance disorder [Unknown]
  - Sputum increased [Unknown]
  - Renal failure [Unknown]
  - Acute kidney injury [Recovering/Resolving]
  - Polyuria [Recovering/Resolving]
  - Pulmonary arterial hypertension [Recovering/Resolving]
  - Right ventricular dilatation [Unknown]
  - Inferior vena cava dilatation [Unknown]
  - Nausea [Not Recovered/Not Resolved]
  - Malaise [Unknown]
  - Cardiorenal syndrome [Unknown]
  - Oedema peripheral [Recovering/Resolving]
  - Depression [Unknown]
  - Dyspnoea [Not Recovered/Not Resolved]
  - Disease progression [Not Recovered/Not Resolved]
  - Pulmonary oedema [Unknown]
  - Right ventricular dysfunction [Unknown]
  - Somnolence [Unknown]
  - Oxygen saturation decreased [Unknown]
  - Chronic respiratory failure [Unknown]
  - Blister [Unknown]
  - Cough [Unknown]
  - Anxiety [Unknown]

NARRATIVE: CASE EVENT DATE: 20180709
